FAERS Safety Report 8408160-2 (Version None)
Quarter: 2012Q2

REPORT INFORMATION
  Report Type: 
  Country: None (occurrence: None)
  Receive Date: 20120323
  Receipt Date: 20110512
  Transmission Date: 20120825
  Serious: Yes (Hospitalization)
  Sender: FDA-Public Use
  Company Number: 163-21880-11042723

PATIENT
  Age: 63 Year
  Sex: Male

DRUGS (22)
  1. DOXAZOSIN MESYLATE [Concomitant]
  2. ONDANSETRON [Concomitant]
  3. METRONIDAZOLE [Concomitant]
  4. PROMETHAZINE [Concomitant]
  5. REVLIMID [Suspect]
     Indication: MULTIPLE MYELOMA
     Dosage: 25 MG, QD X 21 D, OFF 7X, PO
     Route: 048
     Dates: start: 20110201, end: 20110330
  6. CHOLESTYRAMINE (COLESTYRAMINE) [Concomitant]
  7. LOMOTIL [Concomitant]
  8. MORPHONE SULFATE (MORPHONE SULFATE) [Concomitant]
  9. HYDROCODONE/APAP (PROCET /USA/) [Concomitant]
  10. ERYTHROMYCIN [Concomitant]
  11. ALPRAZOLA (ALPRAZOLAM) [Concomitant]
  12. CEPHALEXIN [Concomitant]
  13. HYDROMORPHONE HCL [Concomitant]
  14. LIDOCAIN/PRILOCAINE (EMLA) [Concomitant]
  15. DEXAMETHASONE [Concomitant]
  16. OXYCODONE HCL [Concomitant]
  17. AMLODIPINE BESYLATE [Concomitant]
  18. ZOLPIDEM [Concomitant]
  19. PANTOPRAZOLE [Concomitant]
  20. WARFARIN SODIUM [Concomitant]
  21. CLINDAMYCIN [Concomitant]
  22. FAMOTIDINE [Concomitant]

REACTIONS (3)
  - DEHYDRATION [None]
  - DIARRHOEA [None]
  - NAUSEA [None]
